FAERS Safety Report 5839412-8 (Version None)
Quarter: 2008Q3

REPORT INFORMATION
  Report Type: 
  Country: None (occurrence: None)
  Receive Date: 20080806
  Receipt Date: 20080519
  Transmission Date: 20090109
  Serious: Yes (Other)
  Sender: FDA-Public Use
  Company Number: 001#1#2008-00316

PATIENT
  Age: 90 Year
  Sex: Male

DRUGS (1)
  1. ALPROSTADIL [Suspect]

REACTIONS (1)
  - AORTIC DISSECTION [None]
